FAERS Safety Report 21251581 (Version 13)
Quarter: 2022Q4

REPORT INFORMATION
  Report Type: Report from Study
  Country: CN (occurrence: CN)
  Receive Date: 20220825
  Receipt Date: 20221206
  Transmission Date: 20230112
  Serious: Yes (Death, Other)
  Sender: FDA-Public Use
  Company Number: CN-BRISTOL-MYERS SQUIBB COMPANY-2022-091358

PATIENT
  Age: 64 Year
  Sex: Female

DRUGS (8)
  1. VIDAZA [Suspect]
     Active Substance: AZACITIDINE
     Indication: Product used for unknown indication
     Dosage: FREQUENCY: D1-7
     Route: 065
     Dates: start: 20220315
  2. VIDAZA [Suspect]
     Active Substance: AZACITIDINE
     Dosage: FREQUENCY: D1-7
     Route: 065
     Dates: start: 20220315
  3. VIDAZA [Suspect]
     Active Substance: AZACITIDINE
     Route: 065
     Dates: start: 20220422, end: 20220528
  4. VIDAZA [Suspect]
     Active Substance: AZACITIDINE
     Route: 065
     Dates: start: 20220315
  5. CEFTAZIDIME [Concomitant]
     Active Substance: CEFTAZIDIME
     Indication: Infection prophylaxis
     Route: 065
  6. VANCOMYCIN [Concomitant]
     Active Substance: VANCOMYCIN
     Indication: Product used for unknown indication
     Dosage: TO COVER G+ COCCI
     Route: 065
  7. TYLENOL [Concomitant]
     Active Substance: ACETAMINOPHEN
     Indication: Infection prophylaxis
     Route: 065
  8. CASPOFUNGIN [Concomitant]
     Active Substance: CASPOFUNGIN
     Indication: Infection prophylaxis
     Route: 065

REACTIONS (8)
  - Anaemia [Fatal]
  - Leukopenia [Unknown]
  - Thrombocytopenia [Unknown]
  - Febrile neutropenia [Unknown]
  - Pyrexia [Unknown]
  - Acute myeloid leukaemia [Unknown]
  - Agranulocytosis [Unknown]
  - Neutropenia [Unknown]

NARRATIVE: CASE EVENT DATE: 20220420
